FAERS Safety Report 10527850 (Version 9)
Quarter: 2021Q3

REPORT INFORMATION
  Report Type: Spontaneous
  Country: US (occurrence: US)
  Receive Date: 20141020
  Receipt Date: 20210922
  Transmission Date: 20211014
  Serious: Yes (Other)
  Sender: FDA-Public Use
  Company Number: US-PFIZER INC-2014284244

PATIENT
  Age: 62 Year
  Sex: Male
  Weight: 86.17 kg

DRUGS (30)
  1. LYRICA [Suspect]
     Active Substance: PREGABALIN
     Indication: PAIN
     Dosage: 125 MG, DAILY (50MG Q AM AND 75MG Q PM)
  2. LYRICA [Suspect]
     Active Substance: PREGABALIN
     Indication: BURNING SENSATION
     Dosage: 175 MG, DAILY (50MG AM + 125MG PM)
     Dates: start: 201409
  3. AFRIN NASAL DECONGESTANT [Concomitant]
     Dosage: UNK, DAILY (ONE SPRAY EACH NOSTRILS)
     Route: 045
     Dates: start: 1968
  4. AMITRIPTYLINE [Concomitant]
     Active Substance: AMITRIPTYLINE
     Indication: NEUROPATHY PERIPHERAL
     Dosage: 10 MG, 1X/DAY (ONE BY MOUTH AT HS)
     Route: 048
     Dates: start: 2006
  5. ASPIRIN 81 [Concomitant]
     Active Substance: ASPIRIN
     Dosage: 81 MG, 1X/DAY
     Route: 048
     Dates: start: 2002
  6. BREO ELLIPTA [Concomitant]
     Active Substance: FLUTICASONE FUROATE\VILANTEROL TRIFENATATE
     Dosage: UNK, DAILY (1 INHALATION) [FLUTICASONE FUROATE 200 MCG/VILANTEROL TRIFENATATE 25MCG]
     Route: 055
  7. FISH OIL [Concomitant]
     Active Substance: FISH OIL
     Indication: CARDIAC FAILURE
     Dosage: 4000 MG, 1X/DAY
     Route: 048
     Dates: start: 2002
  8. LYRICA [Suspect]
     Active Substance: PREGABALIN
     Indication: SCIATICA
     Dosage: 225 MG, 1X/DAY (PM/QPM ONE CAPSULE EVERY EVENING)
     Route: 048
     Dates: start: 2008
  9. LYRICA [Suspect]
     Active Substance: PREGABALIN
     Indication: HYPOAESTHESIA
     Dosage: 50 MG, 1X/DAY (ONE EACH AM)
     Route: 048
     Dates: start: 2008
  10. LYRICA [Suspect]
     Active Substance: PREGABALIN
     Dosage: 150 MG, DAILY (1 CAP AT HS)
     Route: 048
  11. FLONASE [Concomitant]
     Active Substance: FLUTICASONE PROPIONATE
     Indication: SEASONAL ALLERGY
     Dosage: 4 DF, 1X/DAY
     Route: 045
  12. METOPROLOL SUCCINATE. [Concomitant]
     Active Substance: METOPROLOL SUCCINATE
     Dosage: 25 MG, 1X/DAY
     Route: 048
     Dates: start: 2002
  13. QUINAPRIL. [Concomitant]
     Active Substance: QUINAPRIL
     Dosage: 2.5 MG, 1X/DAY
     Dates: start: 2002
  14. LYRICA [Suspect]
     Active Substance: PREGABALIN
     Indication: PARAESTHESIA
     Dosage: 225 MG, DAILY (TWO 50MG CAPSULES IN THE MORNING AND A 50MG AND A 75MG CAPSULE AT NIGHT)
     Route: 048
  15. LYRICA [Suspect]
     Active Substance: PREGABALIN
     Indication: PRURITUS
     Dosage: 300 MG, DAILY
  16. AMITRIPTYLINE [Concomitant]
     Active Substance: AMITRIPTYLINE
     Dosage: UNK
     Dates: start: 2015
  17. BENADRYL [Concomitant]
     Active Substance: DIPHENHYDRAMINE HYDROCHLORIDE
     Indication: SEASONAL ALLERGY
     Dosage: 1 DF, 1X/DAY
     Route: 048
     Dates: start: 2002
  18. LIPITOR [Concomitant]
     Active Substance: ATORVASTATIN CALCIUM
     Indication: BLOOD CHOLESTEROL INCREASED
     Dosage: 20 MG, 1X/DAY (ONE TABLET IN THE MORNING)
     Route: 048
     Dates: start: 2001
  19. ALEVE [Concomitant]
     Active Substance: NAPROXEN SODIUM
     Indication: OSTEOARTHRITIS
     Dosage: 4 DF, DAILY
     Route: 048
     Dates: start: 2002
  20. LOSARTAN. [Concomitant]
     Active Substance: LOSARTAN
     Indication: HYPERTENSION
     Dosage: 100 MG, DAILY
     Route: 048
  21. NASOCORT [Concomitant]
     Active Substance: BUDESONIDE
     Dosage: UNK
     Dates: start: 2014
  22. VENTOLIN HFA [Concomitant]
     Active Substance: ALBUTEROL SULFATE
     Indication: WHEEZING
     Dosage: UNK, AS NEEDED (90 MCG/INH, PUFFS WITH SPACER Q4?6 HOURS PRN)
  23. ASPIRIN 81 [Concomitant]
     Active Substance: ASPIRIN
     Indication: CARDIAC DISORDER
     Dosage: 81 MG, 1X/DAY (ONE TABLET AT NIGHT)
     Route: 048
     Dates: start: 2001
  24. ELOCON [Concomitant]
     Active Substance: MOMETASONE FUROATE
     Dosage: UNK, 2X/DAY (APPLY SPARINGLY TO AFFECTED AREA SKIN BID (TWICE A DAY) UNTIL CLEARED)
     Route: 061
  25. VENTOLIN HFA [Concomitant]
     Active Substance: ALBUTEROL SULFATE
     Indication: COUGH
  26. LYRICA [Suspect]
     Active Substance: PREGABALIN
     Dosage: 275 MG, DAILY
  27. LYRICA [Suspect]
     Active Substance: PREGABALIN
     Dosage: 75 MG, 1X/DAY (ONE EACH AM)
     Route: 048
  28. CRESTOR [Concomitant]
     Active Substance: ROSUVASTATIN CALCIUM
     Dosage: 20 MG, 1X/DAY
     Dates: start: 2002
  29. METOPROLOL SUCCINATE. [Concomitant]
     Active Substance: METOPROLOL SUCCINATE
     Indication: HYPERTENSION
     Dosage: 25 MG, 1X/DAY (ONE TABLET IN THE MORNING)
     Route: 048
     Dates: start: 2001
  30. NASOCORT [Concomitant]
     Active Substance: BUDESONIDE
     Indication: HYPERSENSITIVITY
     Dosage: UNK, 1X/DAY (2 SPRAY QNARE QDAY (ONCE A DAY))
     Dates: start: 2013

REACTIONS (12)
  - Balance disorder [Recovered/Resolved]
  - Dizziness postural [Not Recovered/Not Resolved]
  - Back pain [Not Recovered/Not Resolved]
  - Drug intolerance [Recovered/Resolved]
  - Drug ineffective [Not Recovered/Not Resolved]
  - Nausea [Recovered/Resolved]
  - Feeling abnormal [Not Recovered/Not Resolved]
  - Fibromyalgia [Not Recovered/Not Resolved]
  - Gait disturbance [Recovered/Resolved]
  - Spinal disorder [Unknown]
  - Balance disorder [Not Recovered/Not Resolved]
  - Restless legs syndrome [Not Recovered/Not Resolved]
